FAERS Safety Report 25375298 (Version 1)
Quarter: 2025Q2

REPORT INFORMATION
  Report Type: Spontaneous
  Country: PE (occurrence: PE)
  Receive Date: 20250529
  Receipt Date: 20250529
  Transmission Date: 20250717
  Serious: Yes (Other)
  Sender: BAYER HEALTHCARE PHARMACEUTICALS INC.
  Company Number: PE-BAYER-2025A071051

PATIENT
  Age: 50 Year
  Sex: Female

DRUGS (5)
  1. CIPROFLOXACIN [Suspect]
     Active Substance: CIPROFLOXACIN
     Dosage: 400 MG, BID EVERY 12 HOURS
  2. CEFEPIME [Concomitant]
     Active Substance: CEFEPIME HYDROCHLORIDE
     Dosage: 500 MG, QD
  3. PIPERACILLIN [Suspect]
     Active Substance: PIPERACILLIN
  4. TAZOBACTAM [Suspect]
     Active Substance: TAZOBACTAM
  5. VANCOMYCIN [Suspect]
     Active Substance: VANCOMYCIN

REACTIONS (8)
  - Pulmonary congestion [None]
  - Pericardial effusion [None]
  - Pyrexia [Recovered/Resolved]
  - Oxygen saturation decreased [None]
  - Dyspnoea [None]
  - Hypotension [None]
  - C-reactive protein increased [None]
  - Pericardial drainage [None]
